FAERS Safety Report 5152608-6 (Version None)
Quarter: 2006Q4

REPORT INFORMATION
  Report Type: 
  Country: None (occurrence: None)
  Receive Date: 20061109
  Receipt Date: 20061024
  Transmission Date: 20070319
  Serious: Yes (Other)
  Sender: FDA-Public Use
  Company Number: DSA_28923_2006

PATIENT

DRUGS (3)
  1. LORAZEPAM [Suspect]
     Dosage: DF
  2. ZOPICLONE [Suspect]
     Indication: INSOMNIA
     Dosage: 2.5 MG Q DAY
     Dates: start: 20010823, end: 20021218
  3. TEMAZEPAM [Suspect]
     Dosage: VAR PO
     Route: 048
     Dates: start: 20010823

REACTIONS (8)
  - ABNORMAL BEHAVIOUR [None]
  - FATIGUE [None]
  - FEAR [None]
  - FEELING ABNORMAL [None]
  - MALAISE [None]
  - NIGHTMARE [None]
  - PALPITATIONS [None]
  - RESTLESSNESS [None]
